FAERS Safety Report 11773672 (Version 1)
Quarter: 2015Q4

REPORT INFORMATION
  Report Type: Spontaneous
  Country: FR (occurrence: FR)
  Receive Date: 20151124
  Receipt Date: 20151124
  Transmission Date: 20160304
  Serious: Yes (Hospitalization)
  Sender: FDA-Public Use
  Company Number: FR-BAYER-2015-466339

PATIENT
  Age: 58 Year
  Sex: Female

DRUGS (7)
  1. ROCEPHINE [Suspect]
     Active Substance: CEFTRIAXONE SODIUM
     Indication: PNEUMONIA ASPIRATION
     Dosage: 1 G, QD
     Route: 042
     Dates: start: 20150815, end: 20150827
  2. VANCOMYCIN [Suspect]
     Active Substance: VANCOMYCIN
     Indication: PNEUMONIA ASPIRATION
     Dosage: 500 MG, BID
     Route: 042
     Dates: start: 20150827, end: 20150902
  3. ZYVOXID [Suspect]
     Active Substance: LINEZOLID
     Indication: PNEUMONIA ASPIRATION
     Dosage: 500 MG, BID
     Route: 042
     Dates: start: 20150907, end: 20150911
  4. TAZOCILLINE [Suspect]
     Active Substance: PIPERACILLIN SODIUM\TAZOBACTAM SODIUM
     Indication: PNEUMONIA ASPIRATION
     Dosage: 1 DF, TID
     Route: 042
     Dates: start: 20150827, end: 20150912
  5. CIFLOX [Suspect]
     Active Substance: CIPROFLOXACIN
     Indication: PNEUMONIA ASPIRATION
     Dosage: 500 MG, BID
     Route: 042
     Dates: start: 20150827, end: 20150911
  6. ROVAMYCINE [Suspect]
     Active Substance: SPIRAMYCIN
     Indication: PNEUMONIA ASPIRATION
     Dosage: 3 MG, TID
     Route: 042
     Dates: start: 20150815, end: 20150827
  7. FLAGYL [Suspect]
     Active Substance: METRONIDAZOLE\METRONIDAZOLE HYDROCHLORIDE
     Indication: PNEUMONIA ASPIRATION
     Dosage: 500 MG, TID
     Route: 042
     Dates: start: 20150815, end: 20150827

REACTIONS (1)
  - Drug reaction with eosinophilia and systemic symptoms [Recovered/Resolved]

NARRATIVE: CASE EVENT DATE: 20150911
